FAERS Safety Report 5166375-3 (Version None)
Quarter: 2006Q4

REPORT INFORMATION
  Report Type: 
  Country: None (occurrence: None)
  Receive Date: 20061129
  Receipt Date: 20040707
  Transmission Date: 20070319
  Serious: Yes (Other)
  Sender: FDA-Public Use
  Company Number: 2006BH010692

PATIENT
  Age: 59 Year
  Sex: Male

DRUGS (1)
  1. NITROGLYCERIN IN DEXTROSE 5% [Suspect]
     Indication: CATHETERISATION CARDIAC
     Dosage: IV
     Route: 042

REACTIONS (1)
  - DRUG INEFFECTIVE [None]
